FAERS Safety Report 18383862 (Version 2)
Quarter: 2021Q1

REPORT INFORMATION
  Report Type: Spontaneous
  Country: ES (occurrence: ES)
  Receive Date: 20201014
  Receipt Date: 20210105
  Transmission Date: 20210419
  Serious: Yes (Hospitalization, Other)
  Sender: FDA-Public Use
  Company Number: ES-ELI_LILLY_AND_COMPANY-ES202010001843

PATIENT
  Age: 56 Year
  Sex: Female

DRUGS (3)
  1. AZELASTINE. [Concomitant]
     Active Substance: AZELASTINE HYDROCHLORIDE
     Indication: PRODUCT USED FOR UNKNOWN INDICATION
  2. BROMAZEPAM [Concomitant]
     Active Substance: BROMAZEPAM
     Indication: PRODUCT USED FOR UNKNOWN INDICATION
     Dosage: UNK, DAILY
  3. EMGALITY [Suspect]
     Active Substance: GALCANEZUMAB-GNLM
     Indication: MIGRAINE
     Dosage: 120 MG, MONTHLY (1/M)
     Route: 058
     Dates: start: 202007

REACTIONS (11)
  - Myocardial infarction [Unknown]
  - Allodynia [Unknown]
  - Arthralgia [Unknown]
  - Neck pain [Unknown]
  - Ear discomfort [Recovered/Resolved]
  - Acute coronary syndrome [Unknown]
  - Dermatitis allergic [Recovered/Resolved]
  - Pruritus [Unknown]
  - Hypotension [Unknown]
  - Stress cardiomyopathy [Unknown]
  - Ear pain [Unknown]

NARRATIVE: CASE EVENT DATE: 2020
